FAERS Safety Report 7485974-7 (Version None)
Quarter: 2011Q2

REPORT INFORMATION
  Report Type: 
  Country: None (occurrence: None)
  Receive Date: 20110516
  Receipt Date: 20110516
  Transmission Date: 20111010
  Serious: Yes (Other)
  Sender: FDA-Public Use
  Company Number: None

PATIENT
  Age: 62 Year
  Sex: Female
  Weight: 72.7 kg

DRUGS (2)
  1. NASONEX [Suspect]
     Indication: HYPERSENSITIVITY
     Dosage: 50MCG 1 SPRAY ONCE A DAY NOSE
     Route: 045
     Dates: start: 20110429, end: 20110430
  2. CHILDREN'S ALLEGRA ALLERGY [Suspect]
     Indication: HYPERSENSITIVITY
     Dosage: 30 MG FIRST DAY HALF THIS 2DAY 1 DAILY ORAL
     Route: 048
     Dates: start: 20110429, end: 20110430

REACTIONS (1)
  - BLINDNESS [None]
